FAERS Safety Report 6898261-2 (Version None)
Quarter: 2010Q3

REPORT INFORMATION
  Report Type: 
  Country: None (occurrence: None)
  Receive Date: 20100802
  Receipt Date: 20070926
  Transmission Date: 20110219
  Serious: No
  Sender: FDA-Public Use
  Company Number: US-PFIZER INC-2007078404

PATIENT
  Sex: Male
  Weight: 72.727 kg

DRUGS (8)
  1. LYRICA [Suspect]
     Indication: HERPES ZOSTER
     Dates: start: 20070803
  2. LYRICA [Suspect]
     Indication: HERPES VIRUS INFECTION
  3. ALTACE [Concomitant]
  4. TOPROL-XL [Concomitant]
  5. ACETYLSALICYLIC ACID SRT [Concomitant]
  6. TAMSULOSIN HYDROCHLORIDE [Concomitant]
  7. PLAVIX [Concomitant]
  8. CADUET [Concomitant]

REACTIONS (1)
  - PAIN [None]
